FAERS Safety Report 10466826 (Version 4)
Quarter: 2015Q3

REPORT INFORMATION
  Report Type: Spontaneous
  Country: US (occurrence: US)
  Receive Date: 20140922
  Receipt Date: 20150903
  Transmission Date: 20151125
  Serious: No
  Sender: FDA-Public Use
  Company Number: US-PFIZER INC-2014257435

PATIENT
  Age: 54 Year
  Sex: Female
  Weight: 93.42 kg

DRUGS (6)
  1. LYRICA [Suspect]
     Active Substance: PREGABALIN
     Indication: NEUROPATHY PERIPHERAL
  2. CLONITIN [Concomitant]
     Indication: PERIODIC LIMB MOVEMENT DISORDER
     Dosage: 2 MG, 2X/DAY
  3. LYRICA [Suspect]
     Active Substance: PREGABALIN
     Indication: MIGRAINE
     Dosage: 800 MG, 2X/DAY
  4. TRAZODONE [Concomitant]
     Active Substance: TRAZODONE HYDROCHLORIDE
     Indication: DEPRESSION
  5. LYRICA [Suspect]
     Active Substance: PREGABALIN
     Indication: FIBROMYALGIA
     Dosage: 200 MG, UNK
     Dates: start: 20150305
  6. TRAZODONE [Concomitant]
     Active Substance: TRAZODONE HYDROCHLORIDE
     Indication: SLEEP DISORDER
     Dosage: 100 MG, DAILY (IN EVENING)

REACTIONS (8)
  - Pain [Unknown]
  - Feeling abnormal [Unknown]
  - Product use issue [Unknown]
  - Tension [Not Recovered/Not Resolved]
  - Withdrawal syndrome [Unknown]
  - Weight increased [Recovering/Resolving]
  - Migraine [Not Recovered/Not Resolved]
  - Hypoaesthesia [Unknown]

NARRATIVE: CASE EVENT DATE: 20140915
